FAERS Safety Report 15878130 (Version 7)
Quarter: 2022Q2

REPORT INFORMATION
  Report Type: Spontaneous
  Country: US (occurrence: US)
  Receive Date: 20190128
  Receipt Date: 20220428
  Transmission Date: 20220721
  Serious: No
  Sender: FDA-Public Use
  Company Number: US-PFIZER INC-2019018118

PATIENT
  Age: 68 Year
  Sex: Female
  Weight: 54 kg

DRUGS (21)
  1. LYRICA [Suspect]
     Active Substance: PREGABALIN
     Indication: Arthralgia
     Dosage: 100 MG, 1X/DAY (NIGHTLY FOR 1 WEEK)
     Route: 048
  2. LYRICA [Suspect]
     Active Substance: PREGABALIN
     Indication: Rheumatoid arthritis
     Dosage: 100 MG, 2X/DAY (INCREASED TO TWICE A DAY)
     Route: 048
  3. LYRICA [Suspect]
     Active Substance: PREGABALIN
     Indication: Back pain
     Dosage: 50 MG, DAILY
     Route: 048
     Dates: start: 2018
  4. LYRICA [Suspect]
     Active Substance: PREGABALIN
     Indication: Arthralgia
     Dosage: 200 MG, 2X/DAY
     Route: 048
  5. LYRICA [Suspect]
     Active Substance: PREGABALIN
     Indication: Lumbar radiculopathy
  6. IRON [Concomitant]
     Active Substance: IRON
     Indication: Anaemia
     Dosage: 27 MG, DAILY
     Route: 048
     Dates: start: 2018
  7. FOLIC ACID [Concomitant]
     Active Substance: FOLIC ACID
     Indication: Rheumatoid arthritis
     Dosage: 800 UG, DAILY
     Route: 048
     Dates: start: 2017
  8. FOLIC ACID [Concomitant]
     Active Substance: FOLIC ACID
     Indication: Inflammation
  9. VITAMIN D3 [Concomitant]
     Active Substance: CHOLECALCIFEROL
     Indication: Bone disorder
     Dosage: 25 UG, DAILY
     Route: 048
     Dates: start: 2017
  10. VITAMIN D3 [Concomitant]
     Active Substance: CHOLECALCIFEROL
     Indication: Immune system disorder
  11. POTASSIUM [Concomitant]
     Active Substance: POTASSIUM
     Indication: Hypokalaemic syndrome
     Dosage: 10 MEQ, DAILY
     Route: 048
     Dates: start: 2016
  12. ATORVASTATIN [Concomitant]
     Active Substance: ATORVASTATIN
     Indication: Blood cholesterol abnormal
     Dosage: 80 MG, DAILY
     Route: 048
     Dates: start: 2017
  13. SERTRALINE [Concomitant]
     Active Substance: SERTRALINE HYDROCHLORIDE
     Dosage: 100 MG, DAILY
     Route: 048
  14. METOPROLOL TARTRATE [Concomitant]
     Active Substance: METOPROLOL TARTRATE
     Dosage: 25 MG, 2X/DAY
     Route: 048
  15. LOSARTAN [Concomitant]
     Active Substance: LOSARTAN
     Dosage: 100 MG, DAILY
     Route: 048
     Dates: start: 2017
  16. EZETIMIBE [Concomitant]
     Active Substance: EZETIMIBE
     Dosage: 10 MG, DAILY
     Route: 048
     Dates: start: 2016
  17. METHOTREXATE [Concomitant]
     Active Substance: METHOTREXATE
     Indication: Rheumatoid arthritis
     Dosage: 15 MG, DAILY (2.5MG, 6 TABLETS TAKEN DAILY: 3 IN THE AM 3 IN THE PM)
  18. LEVOTHYROXINE [Concomitant]
     Active Substance: LEVOTHYROXINE
     Dosage: 100 UG, DAILY
     Route: 048
     Dates: start: 2004
  19. PANTOPRAZOLE [Concomitant]
     Active Substance: PANTOPRAZOLE
     Indication: Gastrooesophageal reflux disease
     Dosage: 40 MG, DAILY
     Route: 048
     Dates: start: 2014
  20. PREDNISONE [Concomitant]
     Active Substance: PREDNISONE
     Indication: Rheumatoid arthritis
     Dosage: 5 MG, 2X/DAY (1 IN THE AM, 1 IN THE PM)
     Route: 048
     Dates: start: 2001
  21. CLONIDINE [Concomitant]
     Active Substance: CLONIDINE
     Indication: Blood cholesterol abnormal
     Dosage: 0.2 MG, 2X/DAY (1 IN THE AM, AND 1 IN THE PM)
     Route: 048
     Dates: start: 2009

REACTIONS (3)
  - Product dispensing error [Unknown]
  - Pain [Not Recovered/Not Resolved]
  - Insomnia [Not Recovered/Not Resolved]

NARRATIVE: CASE EVENT DATE: 20190117
